FAERS Safety Report 7821109-6 (Version None)
Quarter: 2011Q4

REPORT INFORMATION
  Report Type: 
  Country: None (occurrence: None)
  Receive Date: 20111018
  Receipt Date: 20111012
  Transmission Date: 20120403
  Serious: Yes (Other)
  Sender: FDA-Public Use
  Company Number: US-PFIZER INC-2011244391

PATIENT
  Sex: Female
  Weight: 60.771 kg

DRUGS (4)
  1. METOPROLOL [Concomitant]
     Indication: CARDIAC DISORDER
     Dosage: 25 MG, 2X/DAY
  2. LYRICA [Suspect]
     Indication: SCIATIC NERVE NEUROPATHY
     Dosage: UNK
     Route: 048
     Dates: start: 20050101
  3. NEXIUM [Concomitant]
     Indication: HIATUS HERNIA
     Dosage: 40 MG, UNK
  4. ACETYLSALICYLIC ACID [Concomitant]
     Indication: CARDIAC DISORDER
     Dosage: 325 MG, UNK

REACTIONS (1)
  - HYPERTENSION [None]
